FAERS Safety Report 6845850-7 (Version None)
Quarter: 2010Q3

REPORT INFORMATION
  Report Type: 
  Country: None (occurrence: None)
  Receive Date: 20100715
  Receipt Date: 20070830
  Transmission Date: 20110219
  Serious: No
  Sender: FDA-Public Use
  Company Number: US-PFIZER INC-2007072997

PATIENT
  Age: 52 Year
  Sex: Female

DRUGS (1)
  1. CHANTIX [Suspect]
     Dates: start: 20070601

REACTIONS (2)
  - ABNORMAL DREAMS [None]
  - POOR QUALITY SLEEP [None]
